FAERS Safety Report 7681022-4 (Version None)
Quarter: 2011Q3

REPORT INFORMATION
  Report Type: 
  Country: None (occurrence: None)
  Receive Date: 20110812
  Receipt Date: 20110801
  Transmission Date: 20111222
  Serious: Yes (Hospitalization, Other)
  Sender: FDA-Public Use
  Company Number: US-JNJFOC-20081200820

PATIENT
  Sex: Male
  Weight: 36.9 kg

DRUGS (25)
  1. REMICADE [Suspect]
     Dosage: 5MG/KG; 2ND DOSE
     Dates: start: 20080222
  2. LACTOBACILLUS [Concomitant]
  3. LACTOSE [Concomitant]
  4. SACCHRAMISES BALLARDII [Concomitant]
  5. REMICADE [Suspect]
     Dosage: TOTAL 12 DOSES
     Dates: start: 20090216
  6. MERCAPTOPURINE [Concomitant]
  7. FOLIC ACID [Concomitant]
  8. ZOFRAN [Concomitant]
  9. NORTRIPTYLINE HCL [Concomitant]
  10. CULTURELLE [Concomitant]
  11. REMICADE [Suspect]
     Dosage: DOSE DECREASED TO 5 MG/KG (200 MG) FROM 10 MG/KG.
     Dates: start: 20080923
  12. ALLOPURINOL [Concomitant]
  13. M.V.I. [Concomitant]
  14. BENADRYL [Concomitant]
  15. ZANTAC [Concomitant]
  16. TYLENOL-500 [Concomitant]
  17. NALTREXONE HYDROCHLORIDE [Concomitant]
  18. REMICADE [Suspect]
     Indication: INFLAMMATORY BOWEL DISEASE
     Dosage: 10 MG/KG
     Dates: start: 20080204
  19. FERROUS SULFATE TAB [Concomitant]
  20. REMICADE [Suspect]
     Dosage: DOSE INCREASED TO 10 MG/KG; 3RD DOSE
     Dates: start: 20080307
  21. COUMADIN [Concomitant]
  22. PREVACID [Concomitant]
  23. LEXAPRO [Concomitant]
  24. OMNICEF [Concomitant]
  25. ENSURE [Concomitant]

REACTIONS (11)
  - INFLAMMATORY BOWEL DISEASE [None]
  - CYTOMEGALOVIRUS VIRAEMIA [None]
  - DIZZINESS [None]
  - CYTOMEGALOVIRUS COLITIS [None]
  - ANAEMIA [None]
  - VENOUS THROMBOSIS [None]
  - STAPHYLOCOCCAL INFECTION [None]
  - GIARDIASIS [None]
  - THROMBOSIS [None]
  - JOINT EFFUSION [None]
  - SINUSITIS [None]
